FAERS Safety Report 16384527 (Version 1)
Quarter: 2019Q3

REPORT INFORMATION
  Report Type: Spontaneous
  Country: US (occurrence: US)
  Receive Date: 20190531
  Receipt Date: 20190531
  Transmission Date: 20191004
  Serious: Yes (Other)
  Sender: FDA-Public Use
  Company Number: None

PATIENT
  Age: 57 Year
  Sex: Female
  Weight: 76.19 kg

DRUGS (4)
  1. CAPECITABINE. [Suspect]
     Active Substance: CAPECITABINE
     Indication: OVARIAN CANCER
  2. TYLENOL [Concomitant]
     Active Substance: ACETAMINOPHEN
  3. PRENATAL VITAMIN [Concomitant]
     Active Substance: VITAMINS
  4. VALIUM [Concomitant]
     Active Substance: DIAZEPAM

REACTIONS (1)
  - Abdominal pain [None]
